FAERS Safety Report 25176574 (Version 1)
Quarter: 2025Q2

REPORT INFORMATION
  Report Type: Spontaneous
  Country: GB (occurrence: GB)
  Receive Date: 20250409
  Receipt Date: 20250409
  Transmission Date: 20250716
  Serious: Yes (Other)
  Sender: CATALYST PHARMA
  Company Number: GB-CATALYSTPHARMACEUTICALPARTNERS-GB-CATA-25-00482

PATIENT
  Sex: Female

DRUGS (3)
  1. PERAMPANEL [Suspect]
     Active Substance: PERAMPANEL
     Indication: Orthostatic tremor
     Dosage: 4.0 MILLIGRAM(S) (4 MILLIGRAM(S), 1 IN 1 DAY) IN THE MORNING
     Route: 048
  2. PERAMPANEL [Suspect]
     Active Substance: PERAMPANEL
     Dosage: 8.0 MILLIGRAM(S) (8 MILLIGRAM(S), 1 IN 1 DAY) IN THE MORNING
     Route: 048
  3. LISINOPRIL [Concomitant]
     Active Substance: LISINOPRIL
     Indication: Hypertension
     Route: 065

REACTIONS (5)
  - Insomnia [Recovering/Resolving]
  - Aggression [Recovered/Resolved]
  - Depressed mood [Recovered/Resolved]
  - Suicidal ideation [Unknown]
  - Off label use [Unknown]
